FAERS Safety Report 7018615-3 (Version None)
Quarter: 2010Q3

REPORT INFORMATION
  Report Type: 
  Country: None (occurrence: None)
  Receive Date: 20100922
  Receipt Date: 20100909
  Transmission Date: 20110219
  Serious: Yes (Hospitalization)
  Sender: FDA-Public Use
  Company Number: BR-001295

PATIENT
  Sex: Male
  Weight: 20 kg

DRUGS (2)
  1. NAGLAZYME [Suspect]
     Indication: MUCOPOLYSACCHARIDOSIS VI
     Dosage: (20 MG 1X/WEEK INTRAVENOUS DRIP)
     Route: 041
  2. AMOXICILLIN [Concomitant]

REACTIONS (2)
  - DYSPNOEA [None]
  - PNEUMONIA [None]
